FAERS Safety Report 11087720 (Version 1)
Quarter: 2015Q2

REPORT INFORMATION
  Report Type: Spontaneous
  Country: IT (occurrence: None)
  Receive Date: 20150430
  Receipt Date: 20150430
  Transmission Date: 20150821
  Serious: Yes (Other)
  Sender: FDA-Public Use
  Company Number: 2015IT0192

PATIENT
  Age: 18 Year
  Sex: Male

DRUGS (4)
  1. AMMONAPS [Suspect]
     Active Substance: SODIUM PHENYLBUTYRATE
     Indication: CHOLESTASIS
     Dosage: 10 GM (10 GM, 1 IN 1 D), ORAL
     Route: 048
     Dates: start: 20141016, end: 20141031
  2. DEURSIL (URSODEOXYCHOLIC ACID) [Concomitant]
  3. VITAMIN A PALMITATE (RETINOL) [Concomitant]
  4. RIFAMPICIN [Concomitant]
     Active Substance: RIFAMPIN

REACTIONS (8)
  - Irritability [None]
  - Nausea [None]
  - Off label use [None]
  - Headache [None]
  - Quality of life decreased [None]
  - Asthenia [None]
  - Fatigue [None]
  - Social problem [None]

NARRATIVE: CASE EVENT DATE: 20141016
